FAERS Safety Report 24703258 (Version 1)
Quarter: 2024Q4

REPORT INFORMATION
  Report Type: Spontaneous
  Country: CN (occurrence: CN)
  Receive Date: 20241205
  Receipt Date: 20241205
  Transmission Date: 20250115
  Serious: Yes (Hospitalization)
  Sender: PURDUE
  Company Number: CN-NAPPMUNDI-GBR-2024-0121740

PATIENT
  Age: 61 Year
  Sex: Male
  Weight: 60 kg

DRUGS (1)
  1. OXYCONTIN [Suspect]
     Active Substance: OXYCODONE HYDROCHLORIDE
     Indication: Pancreatic carcinoma
     Dosage: 40 MILLIGRAM, BID
     Route: 048
     Dates: start: 20241115, end: 20241117

REACTIONS (3)
  - Constipation [Recovered/Resolved]
  - Abdominal distension [Recovered/Resolved]
  - Nausea [Recovering/Resolving]

NARRATIVE: CASE EVENT DATE: 20241117
